FAERS Safety Report 10502154 (Version 3)
Quarter: 2014Q4

REPORT INFORMATION
  Report Type: Spontaneous
  Country: US (occurrence: US)
  Receive Date: 20141007
  Receipt Date: 20141120
  Transmission Date: 20150528
  Serious: Yes (Hospitalization)
  Sender: FDA-Public Use
  Company Number: US-PFIZER INC-2014274444

PATIENT
  Age: 52 Year
  Sex: Female

DRUGS (5)
  1. AMLODIPINE [Concomitant]
     Active Substance: AMLODIPINE BESYLATE
     Dosage: UNK
  2. LISINOPRIL. [Concomitant]
     Active Substance: LISINOPRIL
     Dosage: UNK
  3. LYRICA [Suspect]
     Active Substance: PREGABALIN
     Indication: FIBROMYALGIA
     Dosage: 200 MG, 3X/DAY
     Dates: end: 2014
  4. VENLAFAXINE [Concomitant]
     Active Substance: VENLAFAXINE HYDROCHLORIDE
     Dosage: UNK
  5. OXYCONTIN [Concomitant]
     Active Substance: OXYCODONE HYDROCHLORIDE
     Dosage: UNK
     Dates: start: 201409

REACTIONS (10)
  - Pain [Recovered/Resolved]
  - Urinary tract infection [Unknown]
  - Dehydration [Unknown]
  - Muscle disorder [Unknown]
  - Withdrawal syndrome [Recovered/Resolved]
  - Decreased appetite [Unknown]
  - Activities of daily living impaired [Recovered/Resolved]
  - Blood magnesium decreased [Recovering/Resolving]
  - Tremor [Recovered/Resolved]
  - Bedridden [Recovered/Resolved]

NARRATIVE: CASE EVENT DATE: 20141001
